FAERS Safety Report 5931060-4 (Version None)
Quarter: 2008Q4

REPORT INFORMATION
  Report Type: 
  Country: None (occurrence: None)
  Receive Date: 20081022
  Receipt Date: 20081014
  Transmission Date: 20090506
  Serious: Yes (Life-Threatening)
  Sender: FDA-Public Use
  Company Number: 100#08#2008-05149

PATIENT
  Age: 66 Year
  Sex: Male

DRUGS (10)
  1. TRAMADOL HCL [Suspect]
     Indication: POSTOPERATIVE ANALGESIA
     Dosage: SEE IMAGE
     Route: 042
  2. DIPYRONE (METAMIZOLE SODIUM) [Concomitant]
  3. NIFEDIPINE [Concomitant]
  4. FENTANYL-100 [Concomitant]
  5. PROPOFOL [Concomitant]
  6. CISATRACURIUM BESILATE (CISATRACURIUM BESILATE) [Concomitant]
  7. REMIFENTANIL (REMIFENTANIL) [Concomitant]
  8. ISOFLURANE [Concomitant]
  9. CRYSTALLOID FLUID (UNKNOWN) [Concomitant]
  10. COLLOID FLUIDS (UNKNOWN) [Concomitant]

REACTIONS (4)
  - MIOSIS [None]
  - RESPIRATORY FAILURE [None]
  - SOMNOLENCE [None]
  - THERAPEUTIC AGENT TOXICITY [None]
